FAERS Safety Report 10417685 (Version 1)
Quarter: 2014Q2

REPORT INFORMATION
  Report Type: Spontaneous
  Country: US (occurrence: None)
  Receive Date: 20140609
  Receipt Date: 20140609
  Transmission Date: 20141212
  Serious: No
  Sender: FDA-Public Use
  Company Number: 2014TUS001509

PATIENT
  Age: 45 Year
  Sex: Female

DRUGS (1)
  1. BRINTELLIX [Suspect]

REACTIONS (6)
  - Serotonin syndrome [None]
  - Pyrexia [None]
  - Tremor [None]
  - Myalgia [None]
  - Dizziness [None]
  - Nausea [None]
